FAERS Safety Report 7993652-0 (Version None)
Quarter: 2011Q4

REPORT INFORMATION
  Report Type: 
  Country: None (occurrence: None)
  Receive Date: 20111219
  Receipt Date: 20111209
  Transmission Date: 20120403
  Serious: Yes (Hospitalization)
  Sender: FDA-Public Use
  Company Number: US-ASTRAZENECA-2011SE60201

PATIENT
  Age: 82 Year
  Sex: Female

DRUGS (2)
  1. PAIN MEDICATION [Concomitant]
  2. NEXIUM [Suspect]
     Route: 048

REACTIONS (4)
  - MUSCULOSKELETAL DISCOMFORT [None]
  - DRUG DOSE OMISSION [None]
  - INTERVERTEBRAL DISC PROTRUSION [None]
  - ULCER [None]
